FAERS Safety Report 4371797-4 (Version None)
Quarter: 2004Q2

REPORT INFORMATION
  Report Type: 
  Country: None (occurrence: None)
  Receive Date: 20040604
  Receipt Date: 20040604
  Transmission Date: 20050107
  Serious: Yes (Life-Threatening, Hospitalization)
  Sender: FDA-Public Use
  Company Number: None

PATIENT
  Sex: Male
  Weight: 54.7 kg

DRUGS (3)
  1. IRESSA [Suspect]
     Indication: LARYNGEAL CANCER
     Dosage: 250 MG Q DAY ORAL
     Route: 048
     Dates: start: 20031229, end: 20040517
  2. SALAGEN [Concomitant]
  3. ACIPHEX [Concomitant]

REACTIONS (4)
  - DYSPNOEA AT REST [None]
  - MALIGNANT NEOPLASM PROGRESSION [None]
  - OEDEMA [None]
  - STRIDOR [None]
